FAERS Safety Report 8888501 (Version 1)
Quarter: 2012Q4

REPORT INFORMATION
  Report Type: Report from Study
  Country: JP (occurrence: JP)
  Receive Date: 20121106
  Receipt Date: 20121106
  Transmission Date: 20130627
  Serious: Yes (Hospitalization, Other)
  Sender: FDA-Public Use
  Company Number: JP-VERTEX PHARMACEUTICAL INC.-AE-2012-001976

PATIENT
  Age: 60 Year
  Sex: Male

DRUGS (11)
  1. VX-950 [Suspect]
     Indication: CHRONIC HEPATITIS C
     Dosage: 2250 mg, qd
     Route: 048
     Dates: start: 20120126, end: 20120129
  2. VX-950 [Suspect]
     Dosage: 1500 mg, qd
     Route: 048
     Dates: start: 20120130, end: 20120201
  3. VX-950 [Suspect]
     Dosage: 1250 mg, qd
     Route: 048
     Dates: start: 20120712, end: 20120725
  4. VX-950 [Suspect]
     Dosage: 1000 mg, qd
     Route: 048
     Dates: start: 20120726, end: 20120913
  5. PEGINTERFERON ALFA-2B [Suspect]
     Indication: CHRONIC HEPATITIS C
     Dosage: 1.3 ?g/kg, qw
     Route: 058
     Dates: start: 20120125, end: 20120125
  6. PEGINTERFERON ALFA-2B [Suspect]
     Dosage: 1.0 ?g/kg, qw
     Route: 058
     Dates: start: 20120712, end: 20120906
  7. RIBAVIRIN [Suspect]
     Indication: CHRONIC HEPATITIS C
     Dosage: 400 mg, qd
     Route: 048
     Dates: start: 20120125, end: 20120129
  8. RIBAVIRIN [Suspect]
     Dosage: 400 mg, qd
     Route: 048
     Dates: start: 20120712, end: 20120719
  9. RIBAVIRIN [Suspect]
     Dosage: 200 mg, qd
     Route: 048
     Dates: start: 20120720, end: 20120918
  10. TAKEPRON [Concomitant]
     Dosage: 30 mg, qd
     Route: 048
     Dates: start: 20120125, end: 20120202
  11. TAKEPRON [Concomitant]
     Dosage: 30 mg, qd
     Route: 048

REACTIONS (6)
  - Renal impairment [Recovered/Resolved]
  - Altered state of consciousness [Recovered/Resolved]
  - Pyrexia [Recovered/Resolved]
  - Platelet count decreased [Recovered/Resolved]
  - Nausea [Recovered/Resolved]
  - Rash [Recovered/Resolved]
